FAERS Safety Report 7022471-7 (Version None)
Quarter: 2010Q3

REPORT INFORMATION
  Report Type: 
  Country: None (occurrence: None)
  Receive Date: 20100930
  Receipt Date: 20100920
  Transmission Date: 20110219
  Serious: Yes (Other)
  Sender: FDA-Public Use
  Company Number: CN-PFIZER INC-2010114956

PATIENT
  Age: 82 Year
  Sex: Male

DRUGS (1)
  1. SULPERAZON [Suspect]
     Indication: LUNG INFECTION
     Dosage: 3G, 3X/DAY
     Route: 041

REACTIONS (1)
  - PLATELET COUNT DECREASED [None]
